FAERS Safety Report 8351188-1 (Version None)
Quarter: 2012Q2

REPORT INFORMATION
  Report Type: 
  Country: None (occurrence: None)
  Receive Date: 20120510
  Receipt Date: 20120502
  Transmission Date: 20120825
  Serious: Yes (Hospitalization)
  Sender: FDA-Public Use
  Company Number: US-US-EMD SERONO, INC.-7130222

PATIENT
  Sex: Female

DRUGS (4)
  1. GABAPENTIN [Concomitant]
     Indication: HEADACHE
     Dates: start: 20080101
  2. REBIF [Suspect]
     Indication: PRODUCT USED FOR UNKNOWN INDICATION
     Route: 058
     Dates: start: 20110921
  3. GABAPENTIN [Concomitant]
  4. LYRICA [Concomitant]
     Indication: PRODUCT USED FOR UNKNOWN INDICATION

REACTIONS (2)
  - CONCUSSION [None]
  - FAECAL INCONTINENCE [None]
